FAERS Safety Report 10215334 (Version 2)
Quarter: 2014Q3

REPORT INFORMATION
  Report Type: Spontaneous
  Country: US (occurrence: US)
  Receive Date: 20140603
  Receipt Date: 20140716
  Transmission Date: 20150326
  Serious: Yes (Death)
  Sender: FDA-Public Use
  Company Number: US-MERCK-1405ESP014409

PATIENT

DRUGS (2)
  1. NOXAFIL [Suspect]
     Active Substance: POSACONAZOLE
     Indication: SALVAGE THERAPY
     Route: 048
  2. NOXAFIL [Suspect]
     Active Substance: POSACONAZOLE
     Indication: SYSTEMIC MYCOSIS

REACTIONS (2)
  - Systemic mycosis [Fatal]
  - Drug ineffective [Fatal]
